FAERS Safety Report 23830195 (Version 2)
Quarter: 2024Q2

REPORT INFORMATION
  Report Type: Spontaneous
  Country: CA (occurrence: CA)
  Receive Date: 20240508
  Receipt Date: 20240514
  Transmission Date: 20240716
  Serious: Yes (Other)
  Sender: FDA-Public Use
  Company Number: CA-JNJFOC-20240506567

PATIENT
  Age: 26 Year
  Sex: Female
  Weight: 119 kg

DRUGS (5)
  1. REMICADE [Suspect]
     Active Substance: INFLIXIMAB
     Indication: Crohn^s disease
     Route: 041
  2. REMICADE [Suspect]
     Active Substance: INFLIXIMAB
     Route: 041
  3. MESALAMINE [Suspect]
     Active Substance: MESALAMINE
     Indication: Product used for unknown indication
  4. MESALAMINE [Suspect]
     Active Substance: MESALAMINE
     Indication: Product used for unknown indication
  5. PENTASA [Suspect]
     Active Substance: MESALAMINE
     Indication: Product used for unknown indication

REACTIONS (9)
  - Abortion spontaneous [Recovered/Resolved]
  - Abscess drainage [Recovered/Resolved]
  - Hidradenitis [Recovered/Resolved]
  - Impaired healing [Recovered/Resolved]
  - Maternal exposure during pregnancy [Recovered/Resolved]
  - Disease recurrence [Recovered/Resolved]
  - Anal abscess [Recovered/Resolved]
  - Nasopharyngitis [Recovered/Resolved]
  - Drug ineffective [Recovered/Resolved]
